FAERS Safety Report 7994856-3 (Version None)
Quarter: 2011Q4

REPORT INFORMATION
  Report Type: 
  Country: None (occurrence: None)
  Receive Date: 20111220
  Receipt Date: 20111212
  Transmission Date: 20120403
  Serious: Yes (Hospitalization)
  Sender: FDA-Public Use
  Company Number: DE-ROCHE-1022193

PATIENT
  Age: 68 Year
  Sex: Female
  Weight: 65 kg

DRUGS (5)
  1. PREDNISOLONE [Concomitant]
     Indication: RHEUMATOID ARTHRITIS
     Dosage: MOST RECENT DOSE 29/NOV/2011
     Route: 048
     Dates: start: 20030201
  2. ALENDRONATE SODIUM [Concomitant]
     Indication: OSTEOPOROSIS
     Dosage: MOST RECENT DOSE 27/NOV/2011
     Route: 048
     Dates: start: 20110301
  3. ACTEMRA [Suspect]
     Indication: RHEUMATOID ARTHRITIS
     Dosage: MOST RECENT DOSE PRIOR TO SAE 07/NOV/2011
     Route: 042
     Dates: start: 20110302
  4. CHOLECALCIFEROL [Concomitant]
     Indication: OSTEOPOROSIS
     Dosage: MOST RECENT DOSE 20/NOV/2011
     Route: 048
     Dates: start: 20110301
  5. DICLOFENAC [Concomitant]
     Indication: RHEUMATOID ARTHRITIS
     Dosage: MOST RECENT DOSE 29/NOV/2011
     Dates: start: 20020201

REACTIONS (1)
  - OSTEOARTHRITIS [None]
